FAERS Safety Report 20454558 (Version 1)
Quarter: 2022Q1

REPORT INFORMATION
  Report Type: Spontaneous
  Country: TW (occurrence: TW)
  Receive Date: 20220210
  Receipt Date: 20220210
  Transmission Date: 20220423
  Serious: Yes (Other)
  Sender: FDA-Public Use
  Company Number: TW-PFIZER INC-202200158444

PATIENT
  Age: 5 Decade
  Sex: Female

DRUGS (3)
  1. SERTRALINE HYDROCHLORIDE [Interacting]
     Active Substance: SERTRALINE HYDROCHLORIDE
     Indication: Obsessive-compulsive disorder
     Dosage: 300 MG, 1X/DAY
  2. CLOZAPINE [Interacting]
     Active Substance: CLOZAPINE
     Indication: Schizophrenia
     Dosage: 400 MG, 1X/DAY
  3. CLOZAPINE [Interacting]
     Active Substance: CLOZAPINE
     Dosage: 350 MG, 1X/DAY

REACTIONS (4)
  - Psychotic disorder [Recovering/Resolving]
  - Drug interaction [Recovering/Resolving]
  - Therapeutic product effect incomplete [Unknown]
  - Prescribed overdose [Unknown]
